FAERS Safety Report 20065428 (Version 1)
Quarter: 2021Q4

REPORT INFORMATION
  Report Type: Spontaneous
  Country: BR (occurrence: BR)
  Receive Date: 20211113
  Receipt Date: 20211113
  Transmission Date: 20220303
  Serious: Yes (Hospitalization, Other)
  Sender: FDA-Public Use
  Company Number: None

PATIENT
  Age: 39 Year
  Sex: Male

DRUGS (8)
  1. LOSARTAN POTASSIUM [Suspect]
     Active Substance: LOSARTAN POTASSIUM
     Indication: Insomnia
     Dosage: UNK
     Route: 065
  2. DESVENLAFAXINE SUCCINATE [Suspect]
     Active Substance: DESVENLAFAXINE SUCCINATE
     Dosage: 2 PILLS, DOSE AND FREQUENCY UNKNOWN
     Route: 065
  3. ZOLPIDEM TARTRATE [Suspect]
     Active Substance: ZOLPIDEM TARTRATE
     Dosage: 100 MG ONE PER DAY AT NIGHT
  4. QUETIAPINE FUMARATE [Suspect]
     Active Substance: QUETIAPINE FUMARATE
     Dosage: 100 MILLIGRAM DAILY
     Route: 065
  5. AKINETON [Suspect]
     Active Substance: BIPERIDEN HYDROCHLORIDE
     Dosage: 2 MILLIGRAM 1 TABLET
  6. DEPAKOTE [Suspect]
     Active Substance: DIVALPROEX SODIUM
     Dosage: 100 MILLIGRAM DAILY AT NIGHT
  7. RIVOTRIL [Suspect]
     Active Substance: CLONAZEPAM
     Indication: Insomnia
     Dosage: 2.5 MILLIGRAM WHEN GOING TO SLEEP
     Route: 065
  8. HALOPERIDOL [Suspect]
     Active Substance: HALOPERIDOL
     Dosage: 5 MILLIGRAM DAILY
     Route: 065

REACTIONS (7)
  - Hepatitis [Not Recovered/Not Resolved]
  - Bipolar disorder [Unknown]
  - Drug abuse [Unknown]
  - Therapeutic product ineffective [Unknown]
  - Hepatic steatosis [Not Recovered/Not Resolved]
  - Musculoskeletal stiffness [Not Recovered/Not Resolved]
  - Alcoholism [Unknown]
